FAERS Safety Report 19223380 (Version 1)
Quarter: 2021Q2

REPORT INFORMATION
  Report Type: Spontaneous
  Country: US (occurrence: US)
  Receive Date: 20210506
  Receipt Date: 20210506
  Transmission Date: 20210717
  Serious: Yes (Disabling, Other)
  Sender: FDA-Public Use
  Company Number: None

PATIENT
  Age: 41 Year
  Sex: Female
  Weight: 56.7 kg

DRUGS (2)
  1. IC SPIRONOLACTONE 50 MG TABLET [Suspect]
     Active Substance: SPIRONOLACTONE
     Indication: ACNE
     Dosage: ?          QUANTITY:2 TABLET(S);?
     Route: 048
     Dates: start: 20191226, end: 20201015
  2. LEVOTHYROXINE. [Concomitant]
     Active Substance: LEVOTHYROXINE

REACTIONS (11)
  - Symptom recurrence [None]
  - Menstrual disorder [None]
  - Muscle spasms [None]
  - Dizziness [None]
  - Palpitations [None]
  - Abdominal pain upper [None]
  - Constipation [None]
  - Insomnia [None]
  - Breast cyst [None]
  - Uterine cyst [None]
  - Uterine enlargement [None]

NARRATIVE: CASE EVENT DATE: 20201015
